FAERS Safety Report 19875641 (Version 1)
Quarter: 2021Q3

REPORT INFORMATION
  Report Type: Spontaneous
  Country: US (occurrence: US)
  Receive Date: 20210924
  Receipt Date: 20210924
  Transmission Date: 20211014
  Serious: No
  Sender: FDA-Public Use
  Company Number: US-009507513-2108USA007823

PATIENT
  Sex: Female

DRUGS (1)
  1. PROVENTIL [Suspect]
     Active Substance: ALBUTEROL
     Dosage: 90 MCG/2 PUFFS DAILY

REACTIONS (3)
  - Poor quality device used [Unknown]
  - No adverse event [Unknown]
  - Device malfunction [Unknown]
